FAERS Safety Report 9208251 (Version 10)
Quarter: 2015Q1

REPORT INFORMATION
  Report Type: Spontaneous
  Country: GB (occurrence: GB)
  Receive Date: 20130403
  Receipt Date: 20140207
  Transmission Date: 20150721
  Serious: Yes (Hospitalization)
  Sender: FDA-Public Use
  Company Number: GB-ACTAVIS-2013-05423

PATIENT
  Age: 49 Year
  Sex: Female

DRUGS (7)
  1. ZOTON [Suspect]
     Active Substance: LANSOPRAZOLE
     Indication: EPILEPSY
     Dosage: UNK
     Route: 065
  2. CLOZAPINE. [Concomitant]
     Active Substance: CLOZAPINE
     Indication: PRODUCT USED FOR UNKNOWN INDICATION
     Dosage: UNK
     Route: 065
  3. IBUPROFEN (UNKNOWN) [Suspect]
     Active Substance: IBUPROFEN
     Indication: PRODUCT USED FOR UNKNOWN INDICATION
     Dosage: UNK
     Route: 065
  4. DIAZEPAM (UNKNOWN) [Suspect]
     Active Substance: DIAZEPAM
     Indication: UNEVALUABLE EVENT
     Dosage: UNK
     Route: 065
  5. DIAZEPAM (UNKNOWN) [Suspect]
     Active Substance: DIAZEPAM
     Indication: EPILEPSY
     Dosage: UNK
     Route: 065
  6. EPILIM [Suspect]
     Active Substance: VALPROATE SODIUM
     Indication: EPILEPSY
     Dosage: 6 G, TOTAL
     Route: 065
     Dates: start: 20030808, end: 20030808
  7. ZOTON [Suspect]
     Active Substance: LANSOPRAZOLE
     Indication: UNEVALUABLE EVENT
     Dosage: UNK
     Route: 065

REACTIONS (7)
  - Hyperhidrosis [Recovered/Resolved]
  - Overdose [Unknown]
  - Sedation [Unknown]
  - Ataxia [Recovered/Resolved]
  - Somnolence [Recovered/Resolved]
  - Feeling hot [Recovered/Resolved]
  - Disturbance in attention [Recovered/Resolved]

NARRATIVE: CASE EVENT DATE: 20030808
